FAERS Safety Report 10240831 (Version 2)
Quarter: 2014Q2

REPORT INFORMATION
  Report Type: Spontaneous
  Country: US (occurrence: US)
  Receive Date: 20140617
  Receipt Date: 20140630
  Transmission Date: 20141212
  Serious: Yes (Other)
  Sender: FDA-Public Use
  Company Number: US-SA-2014SA074641

PATIENT
  Age: 73 Year
  Sex: Male

DRUGS (4)
  1. APIDRA SOLOSTAR [Suspect]
     Indication: TYPE 2 DIABETES MELLITUS
     Dosage: DOSE- 15-20 UNITS?FREQUENCY: 3X
     Route: 065
     Dates: start: 2005
  2. LANTUS SOLOSTAR [Suspect]
     Indication: TYPE 2 DIABETES MELLITUS
     Dosage: DOSE:50 UNIT(S)
     Route: 065
     Dates: start: 2004
  3. SOLOSTAR [Concomitant]
  4. SOLOSTAR [Concomitant]
     Dates: start: 2004

REACTIONS (1)
  - Retinal oedema [Unknown]
